FAERS Safety Report 22906637 (Version 8)
Quarter: 2025Q2

REPORT INFORMATION
  Report Type: Spontaneous
  Country: FR (occurrence: FR)
  Receive Date: 20230905
  Receipt Date: 20250403
  Transmission Date: 20250717
  Serious: Yes (Hospitalization, Other)
  Sender: NOVARTIS
  Company Number: None

PATIENT
  Age: 61 Year
  Sex: Male

DRUGS (80)
  1. VALGANCICLOVIR [Suspect]
     Active Substance: VALGANCICLOVIR
     Indication: Antiviral prophylaxis
     Route: 065
     Dates: start: 202304, end: 20230629
  2. CERTICAN [Suspect]
     Active Substance: EVEROLIMUS
     Indication: Product used for unknown indication
     Route: 065
     Dates: start: 202304
  3. CERTICAN [Suspect]
     Active Substance: EVEROLIMUS
     Dosage: 3 MG, QD, (1.5 MG, BID (MORNING AND EVENING))
     Route: 065
     Dates: start: 20230415
  4. CERTICAN [Suspect]
     Active Substance: EVEROLIMUS
     Dosage: 2 MG, QD, (1 MG, BID (MORNING AND EVENING))
     Route: 065
  5. ZIEXTENZO [Suspect]
     Active Substance: PEGFILGRASTIM-BMEZ
     Indication: Product used for unknown indication
     Route: 065
     Dates: start: 20230527
  6. TACROLIMUS [Suspect]
     Active Substance: TACROLIMUS
     Indication: Lung transplant rejection
     Dosage: 8 MG, QD, (4 MG, BID, (2 TIMES JR))
     Route: 065
     Dates: start: 202304
  7. TACROLIMUS [Suspect]
     Active Substance: TACROLIMUS
     Dosage: 6 MG, QD, (3 MG, BID, (MORNING AND EVENING))
     Route: 065
  8. TACROLIMUS [Suspect]
     Active Substance: TACROLIMUS
     Dosage: 4 MG, QD, (3 MG, BID, (MORNING AND EVENING))
     Route: 065
  9. TACROLIMUS [Suspect]
     Active Substance: TACROLIMUS
     Route: 065
  10. TACROLIMUS [Suspect]
     Active Substance: TACROLIMUS
     Route: 065
  11. MYCOPHENOLATE MOFETIL [Suspect]
     Active Substance: MYCOPHENOLATE MOFETIL
     Indication: Lung transplant rejection
     Route: 065
     Dates: start: 202304
  12. MYCOPHENOLATE MOFETIL [Suspect]
     Active Substance: MYCOPHENOLATE MOFETIL
     Route: 065
     Dates: start: 202306
  13. MYCOPHENOLATE MOFETIL [Suspect]
     Active Substance: MYCOPHENOLATE MOFETIL
     Dosage: 1 DOSAGE FORM, Q12H (NR)
     Route: 065
     Dates: start: 202304, end: 202306
  14. SOTALOL HYDROCHLORIDE [Suspect]
     Active Substance: SOTALOL HYDROCHLORIDE
     Indication: Product used for unknown indication
     Dosage: 0.5 DOSAGE FORM, BID ((1/2 TABLET MORNING AND EVENING))
     Route: 065
  15. SOTALOL HYDROCHLORIDE [Suspect]
     Active Substance: SOTALOL HYDROCHLORIDE
     Route: 065
  16. PANTOPRAZOLE [Suspect]
     Active Substance: PANTOPRAZOLE
     Indication: Product used for unknown indication
     Dosage: 20 MG, QD
     Route: 048
  17. ROSUVASTATIN [Suspect]
     Active Substance: ROSUVASTATIN
     Indication: Product used for unknown indication
     Dosage: 10 MG, QD (10 MG, QD,IN THE EVENING)
     Route: 048
  18. CYCLOSPORINE [Suspect]
     Active Substance: CYCLOSPORINE
     Indication: Product used for unknown indication
     Route: 065
     Dates: start: 20230309, end: 20230313
  19. CASPOFUNGIN [Suspect]
     Active Substance: CASPOFUNGIN
     Indication: Product used for unknown indication
     Route: 065
     Dates: start: 20230309, end: 20230313
  20. MAGNESIUM [Suspect]
     Active Substance: MAGNESIUM
     Indication: Product used for unknown indication
     Dosage: 2 DOSAGE FORM, QD (2 SACHETS IN THE MORNING)
     Route: 065
  21. SIMULECT [Suspect]
     Active Substance: BASILIXIMAB
     Indication: Product used for unknown indication
     Route: 065
     Dates: start: 20230309, end: 20230313
  22. AMOXICILLIN\CLAVULANATE POTASSIUM [Suspect]
     Active Substance: AMOXICILLIN\CLAVULANATE POTASSIUM
     Indication: Product used for unknown indication
     Route: 065
     Dates: start: 20230309, end: 20230313
  23. PEGFILGRASTIM [Suspect]
     Active Substance: PEGFILGRASTIM
     Indication: Product used for unknown indication
     Route: 065
     Dates: start: 20230527
  24. APIXABAN [Suspect]
     Active Substance: APIXABAN
     Indication: Product used for unknown indication
     Dosage: 1 DOSAGE FORM, BID
     Route: 065
  25. VALGANCICLOVIR HYDROCHLORIDE [Suspect]
     Active Substance: VALGANCICLOVIR HYDROCHLORIDE
     Indication: Antiviral prophylaxis
     Route: 065
     Dates: start: 202304, end: 20230629
  26. LANSOPRAZOLE [Suspect]
     Active Substance: LANSOPRAZOLE
     Indication: Product used for unknown indication
     Dosage: 1 DOSAGE FORM IN EVENING
     Route: 065
  27. PROGRAF [Suspect]
     Active Substance: TACROLIMUS
     Indication: Lung transplant rejection
     Dosage: 4 MG, BID (4MG 2 TIMES JR)
     Route: 065
     Dates: start: 202304
  28. PROGRAF [Suspect]
     Active Substance: TACROLIMUS
     Dosage: 3 MG, QD (3 MG,MORNING AND EVENING)
     Route: 065
  29. PROGRAF [Suspect]
     Active Substance: TACROLIMUS
     Dosage: 2 MG, BID, (4 MG, QD)
     Route: 065
  30. PROGRAF [Suspect]
     Active Substance: TACROLIMUS
     Dosage: 8 MG, QD
     Route: 065
  31. PROGRAF [Suspect]
     Active Substance: TACROLIMUS
     Dosage: 6 MG, QD
     Route: 065
  32. PROGRAF [Suspect]
     Active Substance: TACROLIMUS
     Dosage: 4 MG, QD
     Route: 065
  33. PROGRAF [Suspect]
     Active Substance: TACROLIMUS
     Route: 065
  34. PROGRAF [Suspect]
     Active Substance: TACROLIMUS
     Route: 065
  35. PROGRAF [Suspect]
     Active Substance: TACROLIMUS
     Route: 065
     Dates: start: 202304
  36. PROGRAF [Suspect]
     Active Substance: TACROLIMUS
     Dosage: (2 MG, MORNING AND EVENING)
     Route: 065
  37. PROGRAF [Suspect]
     Active Substance: TACROLIMUS
     Dosage: (2 MG, MORNING AND EVENING)
     Route: 065
  38. PREDNISONE [Suspect]
     Active Substance: PREDNISONE
     Indication: Lung transplant rejection
     Dosage: 25 MG, QD
     Route: 065
     Dates: start: 202304
  39. PREDNISONE [Suspect]
     Active Substance: PREDNISONE
     Dosage: 5 MG, QD
     Route: 065
  40. PREDNISONE [Suspect]
     Active Substance: PREDNISONE
     Dosage: 7.5 MG, QD
     Route: 065
     Dates: start: 202304
  41. PREDNISONE [Suspect]
     Active Substance: PREDNISONE
     Dosage: 10 MG, QD
     Route: 065
     Dates: start: 202304
  42. PREDNISONE [Suspect]
     Active Substance: PREDNISONE
     Dosage: 12.5 MG, QD
     Route: 065
     Dates: start: 202304
  43. PREDNISONE [Suspect]
     Active Substance: PREDNISONE
     Dosage: 12.5 MG, QD
     Route: 065
  44. PREDNISONE [Suspect]
     Active Substance: PREDNISONE
     Dosage: 10 MG, QD
     Route: 065
  45. PREDNISONE [Suspect]
     Active Substance: PREDNISONE
     Dosage: 7.5 MG, QD
     Route: 065
  46. PREDNISONE [Suspect]
     Active Substance: PREDNISONE
     Dosage: 5 MG, QD
     Route: 065
  47. CELLCEPT [Suspect]
     Active Substance: MYCOPHENOLATE MOFETIL
     Indication: Lung transplant rejection
     Route: 065
     Dates: start: 202304, end: 202306
  48. CELLCEPT [Suspect]
     Active Substance: MYCOPHENOLATE MOFETIL
     Route: 065
     Dates: start: 202306
  49. CELLCEPT [Suspect]
     Active Substance: MYCOPHENOLATE MOFETIL
     Dosage: 1 DOSAGE FORM, BID
     Route: 065
     Dates: start: 202304, end: 202306
  50. CELLCEPT [Suspect]
     Active Substance: MYCOPHENOLATE MOFETIL
     Dosage: NR
     Route: 065
     Dates: start: 202304, end: 202306
  51. GANCICLOVIR SODIUM [Suspect]
     Active Substance: GANCICLOVIR SODIUM
     Indication: Product used for unknown indication
     Route: 065
     Dates: start: 20230309, end: 20230313
  52. PREDNISONE [Suspect]
     Active Substance: PREDNISONE
     Indication: Lung transplant rejection
     Dosage: 25 MG, QD
     Route: 065
     Dates: start: 202304
  53. PREDNISONE [Suspect]
     Active Substance: PREDNISONE
     Dosage: 12.5 MG, QD
     Route: 065
  54. PREDNISONE [Suspect]
     Active Substance: PREDNISONE
     Dosage: 10 MG, QD
     Route: 065
  55. PREDNISONE [Suspect]
     Active Substance: PREDNISONE
     Dosage: 7.5 MG, QD
     Route: 065
  56. PREDNISONE [Suspect]
     Active Substance: PREDNISONE
     Dosage: 5 MG, QD
     Route: 065
  57. LANSOPRAZOLE [Suspect]
     Active Substance: LANSOPRAZOLE
     Indication: Product used for unknown indication
     Dosage: 1 DOSAGE FORM, QD (1 DF, QD, (IN EVENING))
     Route: 065
  58. PENTACARINAT [Suspect]
     Active Substance: PENTAMIDINE ISETHIONATE
     Indication: Product used for unknown indication
     Dosage: 300 MG, QMO (300 MG, IN 1 MONTH)
     Route: 065
     Dates: start: 20230712
  59. PENTACARINAT [Suspect]
     Active Substance: PENTAMIDINE ISETHIONATE
     Dosage: 300 MG, QMO (1 MONTH)
     Route: 065
     Dates: start: 20230712
  60. PENTACARINAT [Suspect]
     Active Substance: PENTAMIDINE ISETHIONATE
     Dosage: 300 MG, IN 1 MONTH
     Route: 065
  61. LEUCOVORIN CALCIUM [Suspect]
     Active Substance: LEUCOVORIN CALCIUM
     Indication: Product used for unknown indication
     Dosage: 5 MG, (MONDAY, WEDNESDAY,FRIDAY)
     Route: 065
  62. LEUCOVORIN CALCIUM [Suspect]
     Active Substance: LEUCOVORIN CALCIUM
     Route: 065
  63. LEUCOVORIN CALCIUM [Suspect]
     Active Substance: LEUCOVORIN CALCIUM
     Route: 065
  64. VITAMIN D3 [Suspect]
     Active Substance: CHOLECALCIFEROL
     Indication: Product used for unknown indication
     Dosage: 1 DOSAGE FORM, QD ((500MG/400UI 1 SACHET IN THE MORNING))
     Route: 065
  65. VITAMIN D3 [Suspect]
     Active Substance: CHOLECALCIFEROL
     Dosage: (500MG/400UI 1 SACHET IN THE MORNING)
     Route: 065
  66. METHYLPREDNISOLONE [Suspect]
     Active Substance: METHYLPREDNISOLONE
     Indication: Product used for unknown indication
     Route: 065
     Dates: start: 20230309, end: 20230313
  67. OLODATEROL HYDROCHLORIDE\TIOTROPIUM BROMIDE MONOHYDRATE [Suspect]
     Active Substance: OLODATEROL HYDROCHLORIDE\TIOTROPIUM BROMIDE MONOHYDRATE
     Indication: Product used for unknown indication
     Dosage: 2 DOSAGE FORM, QD (2 PUFFS/D)
     Route: 055
  68. OLODATEROL HYDROCHLORIDE\TIOTROPIUM BROMIDE MONOHYDRATE [Suspect]
     Active Substance: OLODATEROL HYDROCHLORIDE\TIOTROPIUM BROMIDE MONOHYDRATE
     Dosage: 2 DOSAGE FORM, QD (2 PUFFS/D)
     Route: 065
  69. OLODATEROL HYDROCHLORIDE\TIOTROPIUM BROMIDE MONOHYDRATE [Suspect]
     Active Substance: OLODATEROL HYDROCHLORIDE\TIOTROPIUM BROMIDE MONOHYDRATE
     Dosage: UNK, QD
     Route: 065
  70. OLODATEROL HYDROCHLORIDE\TIOTROPIUM BROMIDE MONOHYDRATE [Suspect]
     Active Substance: OLODATEROL HYDROCHLORIDE\TIOTROPIUM BROMIDE MONOHYDRATE
     Dosage: UNK, QD
     Route: 055
  71. OLODATEROL HYDROCHLORIDE\TIOTROPIUM BROMIDE MONOHYDRATE [Suspect]
     Active Substance: OLODATEROL HYDROCHLORIDE\TIOTROPIUM BROMIDE MONOHYDRATE
     Route: 065
  72. CRESTOR [Suspect]
     Active Substance: ROSUVASTATIN CALCIUM
     Indication: Product used for unknown indication
     Dosage: 10 MG, QD(IN THE EVENING)
     Route: 048
  73. CRESTOR [Suspect]
     Active Substance: ROSUVASTATIN CALCIUM
     Dosage: (10 MG, QD,IN THE EVENING)
     Route: 065
  74. CALCIUM CARBONATE [Suspect]
     Active Substance: CALCIUM CARBONATE
     Indication: Product used for unknown indication
     Route: 065
  75. CALCIUM CARBONATE [Suspect]
     Active Substance: CALCIUM CARBONATE
     Dosage: UNK, QD
     Route: 065
  76. ELIQUIS [Suspect]
     Active Substance: APIXABAN
     Indication: Product used for unknown indication
     Dosage: 2 DOSAGE FORM, QD, (1 DOSAGE FORM IN MORNING AND EVENING)
     Route: 065
  77. ELIQUIS [Suspect]
     Active Substance: APIXABAN
     Route: 065
  78. AUGMENTIN [Suspect]
     Active Substance: AMOXICILLIN\CLAVULANATE POTASSIUM
     Indication: Product used for unknown indication
     Route: 065
     Dates: start: 20230309, end: 20230313
  79. MAGNESIUM [Suspect]
     Active Substance: MAGNESIUM
     Indication: Product used for unknown indication
     Dosage: 2 DOSAGE FORM, QD
     Route: 065
  80. MAGNESIUM [Suspect]
     Active Substance: MAGNESIUM
     Dosage: (2 SACHETS IN THE MORNING)
     Route: 065

REACTIONS (3)
  - Neutropenia [Recovering/Resolving]
  - Stenotrophomonas infection [Recovered/Resolved]
  - Off label use [Unknown]

NARRATIVE: CASE EVENT DATE: 20230530
